FAERS Safety Report 23331823 (Version 1)
Quarter: 2023Q4

REPORT INFORMATION
  Report Type: Other
  Country: None (occurrence: CA)
  Receive Date: 20231222
  Receipt Date: 20231222
  Transmission Date: 20240109
  Serious: Yes (Hospitalization, Other)
  Sender: FDA-Public Use
  Company Number: CA-Zhejiang Yongtai pharmaceuticals Co..,Ltd.-2149677

PATIENT
  Age: 46 Year
  Sex: Female

DRUGS (7)
  1. GABAPENTIN [Suspect]
     Active Substance: GABAPENTIN
     Indication: Multiple sclerosis
     Route: 065
  2. BACLOFEN [Suspect]
     Active Substance: BACLOFEN
     Route: 065
  3. TIAGABINE [Suspect]
     Active Substance: TIAGABINE
     Route: 065
  4. PROPRANOLOL [Concomitant]
     Active Substance: PROPRANOLOL HYDROCHLORIDE
     Route: 065
  5. DALFAMPRIDINE [Concomitant]
     Active Substance: DALFAMPRIDINE
     Route: 065
  6. TERIFLUNOMIDE [Concomitant]
     Active Substance: TERIFLUNOMIDE
     Route: 065
  7. INTERFERON BETA-1A [Concomitant]
     Active Substance: INTERFERON BETA-1A
     Route: 065

REACTIONS (3)
  - Encephalopathy [Recovering/Resolving]
  - Myoclonus [Recovering/Resolving]
  - Product use in unapproved indication [Unknown]
